FAERS Safety Report 17310874 (Version 1)
Quarter: 2020Q1

REPORT INFORMATION
  Report Type: Spontaneous
  Country: US (occurrence: US)
  Receive Date: 20200123
  Receipt Date: 20200123
  Transmission Date: 20200409
  Serious: No
  Sender: FDA-Public Use
  Company Number: US-ROCHE-2339322

PATIENT
  Sex: Female
  Weight: 73.09 kg

DRUGS (9)
  1. CELLCEPT [Suspect]
     Active Substance: MYCOPHENOLATE MOFETIL\MYCOPHENOLATE MOFETIL HYDROCHLORIDE
     Indication: RAYNAUD^S PHENOMENON
  2. SILDENAFIL. [Concomitant]
     Active Substance: SILDENAFIL
     Indication: RAYNAUD^S PHENOMENON
  3. RITUXAN [Suspect]
     Active Substance: RITUXIMAB
     Indication: RAYNAUD^S PHENOMENON
  4. RITUXAN [Suspect]
     Active Substance: RITUXIMAB
     Indication: SCLERODERMA
  5. RITUXAN [Suspect]
     Active Substance: RITUXIMAB
     Indication: RHEUMATOID ARTHRITIS
     Dosage: HAD ONE DOSE 2 WEEKS APART
     Route: 042
     Dates: start: 20180901
  6. SILDENAFIL. [Concomitant]
     Active Substance: SILDENAFIL
     Indication: SCLERODERMA
  7. CELLCEPT [Suspect]
     Active Substance: MYCOPHENOLATE MOFETIL\MYCOPHENOLATE MOFETIL HYDROCHLORIDE
     Indication: RHEUMATOID ARTHRITIS
     Route: 048
  8. CELLCEPT [Suspect]
     Active Substance: MYCOPHENOLATE MOFETIL\MYCOPHENOLATE MOFETIL HYDROCHLORIDE
     Indication: SCLERODERMA
  9. SILDENAFIL. [Concomitant]
     Active Substance: SILDENAFIL
     Indication: RHEUMATOID ARTHRITIS
     Route: 048

REACTIONS (3)
  - Intentional product use issue [Unknown]
  - Oedema peripheral [Unknown]
  - Off label use [Unknown]
